FAERS Safety Report 5024350-3 (Version None)
Quarter: 2006Q2

REPORT INFORMATION
  Report Type: 
  Country: None (occurrence: None)
  Receive Date: 20060613
  Receipt Date: 20051017
  Transmission Date: 20061013
  Serious: Yes (Hospitalization, Disabling, Other)
  Sender: FDA-Public Use
  Company Number: PHNU2005DE03465

PATIENT
  Age: 51 Year
  Sex: Male
  Weight: 63.5 kg

DRUGS (3)
  1. ZOMETA [Suspect]
     Indication: METASTASES TO BONE
     Dosage: 4 MG, UNK
     Route: 042
     Dates: start: 20030812, end: 20060101
  2. AREDIA [Suspect]
     Indication: METASTASES TO BONE
     Dosage: 90 MG, UNK
     Route: 042
     Dates: start: 20000501, end: 20030601
  3. RADIOTHERAPY [Concomitant]
     Indication: RADIOTHERAPY TO BONE
     Dosage: 30 GY
     Route: 065
     Dates: start: 20000701, end: 20000801

REACTIONS (3)
  - MANDIBULECTOMY [None]
  - OSTEOMYELITIS [None]
  - TOOTH EXTRACTION [None]
